FAERS Safety Report 22618729 (Version 1)
Quarter: 2023Q2

REPORT INFORMATION
  Report Type: Report from Study
  Country: CZ (occurrence: CZ)
  Receive Date: 20230620
  Receipt Date: 20230620
  Transmission Date: 20230721
  Serious: Yes (Life-Threatening)
  Sender: FDA-Public Use
  Company Number: CZ-PFM-2023-00375

PATIENT

DRUGS (12)
  1. PROPRANOLOL HYDROCHLORIDE [Suspect]
     Active Substance: PROPRANOLOL HYDROCHLORIDE
     Indication: Neuroblastoma
     Dosage: UNK
     Route: 065
  2. PROPRANOLOL HYDROCHLORIDE [Suspect]
     Active Substance: PROPRANOLOL HYDROCHLORIDE
     Indication: Off label use
  3. DINUTUXIMAB BETA [Suspect]
     Active Substance: DINUTUXIMAB BETA
     Indication: Neuroblastoma
     Dosage: UNK
     Route: 065
  4. SUNITINIB MALATE [Suspect]
     Active Substance: SUNITINIB MALATE
     Indication: Neuroblastoma
     Dosage: UNK
     Route: 065
  5. VINBLASTINE [Suspect]
     Active Substance: VINBLASTINE
     Indication: Neuroblastoma
     Dosage: UNK
     Route: 065
  6. CRIZOTINIB [Suspect]
     Active Substance: CRIZOTINIB
     Indication: Neuroblastoma
     Dosage: UNK
     Route: 065
  7. LORLATINIB [Suspect]
     Active Substance: LORLATINIB
     Indication: Neuroblastoma
     Dosage: UNK
     Route: 065
  8. RIBOCICLIB [Suspect]
     Active Substance: RIBOCICLIB
     Indication: Neuroblastoma
     Dosage: UNK
     Route: 065
  9. CERITINIB [Suspect]
     Active Substance: CERITINIB
     Indication: Neuroblastoma
     Dosage: UNK
     Route: 065
  10. NIVOLUMAB [Suspect]
     Active Substance: NIVOLUMAB
     Indication: Neuroblastoma
     Dosage: UNK
     Route: 065
  11. NINTEDANIB ESYLATE [Suspect]
     Active Substance: NINTEDANIB ESYLATE
     Indication: Neuroblastoma
     Dosage: UNK
     Route: 065
  12. REGORAFENIB [Suspect]
     Active Substance: REGORAFENIB
     Indication: Neuroblastoma
     Dosage: UNK
     Route: 065

REACTIONS (3)
  - Haematotoxicity [Recovered/Resolved]
  - Product use in unapproved indication [Unknown]
  - Off label use [Unknown]
